FAERS Safety Report 4353802-4 (Version None)
Quarter: 2004Q2

REPORT INFORMATION
  Report Type: 
  Country: None (occurrence: None)
  Receive Date: 20040505
  Receipt Date: 20040505
  Transmission Date: 20050107
  Serious: Yes (Hospitalization)
  Sender: FDA-Public Use
  Company Number: None

PATIENT
  Age: 77 Year
  Sex: Male
  Weight: 86.637 kg

DRUGS (2)
  1. WARFARIN SODIUM [Suspect]
     Indication: ATRIAL FIBRILLATION
     Dosage: 7.5 MG PO QD
     Route: 048
     Dates: end: 20040119
  2. LEVAQUIN [Suspect]
     Indication: PNEUMONIA
     Dosage: 250 MG PO QD
     Route: 048
     Dates: end: 20040119

REACTIONS (5)
  - CARDIAC FAILURE CONGESTIVE [None]
  - HAEMATURIA [None]
  - HAEMOPTYSIS [None]
  - INTERNATIONAL NORMALISED RATIO INCREASED [None]
  - PNEUMONIA [None]
